FAERS Safety Report 4300098-5 (Version None)
Quarter: 2004Q1

REPORT INFORMATION
  Report Type: 
  Country: None (occurrence: None)
  Receive Date: 20040218
  Receipt Date: 20040209
  Transmission Date: 20041129
  Serious: Yes (Other)
  Sender: FDA-Public Use
  Company Number: 2003-12-0768

PATIENT
  Age: 45 Year
  Sex: Male

DRUGS (6)
  1. PEG-INTRON [Suspect]
     Indication: HEPATITIS C
     Dosage: SEE IMAGE
     Route: 058
     Dates: start: 20030331, end: 20030722
  2. PEG-INTRON [Suspect]
     Indication: HEPATITIS C
     Dosage: SEE IMAGE
     Route: 058
     Dates: start: 20030331, end: 20030826
  3. PEG-INTRON [Suspect]
     Indication: HEPATITIS C
     Dosage: SEE IMAGE
     Route: 058
     Dates: start: 20030722, end: 20030826
  4. REBETOL [Suspect]
     Indication: HEPATITIS C
     Dosage: SEE IMAGE
     Route: 048
     Dates: start: 20030331, end: 20030722
  5. REBETOL [Suspect]
     Indication: HEPATITIS C
     Dosage: SEE IMAGE
     Route: 048
     Dates: start: 20030331, end: 20030826
  6. REBETOL [Suspect]
     Indication: HEPATITIS C
     Dosage: SEE IMAGE
     Route: 048
     Dates: start: 20030722, end: 20030826

REACTIONS (10)
  - ASTHENIA [None]
  - AUTOIMMUNE THYROIDITIS [None]
  - COLLAGEN DISORDER [None]
  - DEPRESSION [None]
  - HYPOTHYROIDISM [None]
  - IRRITABILITY [None]
  - MUSCLE RIGIDITY [None]
  - PLATELET COUNT DECREASED [None]
  - POLYARTHRITIS [None]
  - WEIGHT DECREASED [None]
